FAERS Safety Report 25976363 (Version 1)
Quarter: 2025Q4

REPORT INFORMATION
  Report Type: Other
  Country: US (occurrence: US)
  Receive Date: 20251029
  Receipt Date: 20251029
  Transmission Date: 20260118
  Serious: Yes (Hospitalization)
  Sender: BRECKENRIDGE PHARMACEUTICAL, INC.
  Company Number: US-Breckenridge Pharmaceutical, Inc.-2187503

PATIENT
  Age: 65 Year
  Sex: Female

DRUGS (7)
  1. ENTECAVIR [Suspect]
     Active Substance: ENTECAVIR
     Indication: Chronic hepatitis B
  2. ALBUTEROL [Concomitant]
     Active Substance: ALBUTEROL
  3. OMEPRAZOLE [Suspect]
     Active Substance: OMEPRAZOLE
  4. DIVALPROEX SODIUM [Concomitant]
     Active Substance: DIVALPROEX SODIUM
  5. DULOXETINE [Suspect]
     Active Substance: DULOXETINE
  6. HYDROXYCHLOROQUINE SULFATE [Concomitant]
     Active Substance: HYDROXYCHLOROQUINE SULFATE
  7. AZATHIOPRINE [Concomitant]
     Active Substance: AZATHIOPRINE

REACTIONS (2)
  - Myopathy [Recovered/Resolved]
  - Mental status changes [Recovered/Resolved]
